FAERS Safety Report 7586314-5 (Version None)
Quarter: 2011Q2

REPORT INFORMATION
  Report Type: 
  Country: None (occurrence: None)
  Receive Date: 20110630
  Receipt Date: 20110630
  Transmission Date: 20111010
  Serious: No
  Sender: FDA-Public Use
  Company Number: None

PATIENT
  Sex: Male

DRUGS (1)
  1. ADCIRCA [Suspect]
     Dosage: 40MG DAILY PO
     Route: 048
     Dates: start: 20110101, end: 20110101

REACTIONS (1)
  - VISUAL IMPAIRMENT [None]
